FAERS Safety Report 7964696-X (Version None)
Quarter: 2011Q4

REPORT INFORMATION
  Report Type: 
  Country: None (occurrence: None)
  Receive Date: 20111208
  Receipt Date: 20111130
  Transmission Date: 20120403
  Serious: Yes (Other)
  Sender: FDA-Public Use
  Company Number: JP-JNJFOC-20111202372

PATIENT
  Age: 75 Year
  Sex: Male

DRUGS (4)
  1. RISPERDAL [Suspect]
     Indication: DELUSION
     Route: 048
  2. RISPERDAL [Suspect]
     Route: 048
  3. UNKNOWN MEDICATION [Suspect]
     Indication: CEREBRAL INFARCTION
     Route: 065
  4. UNKNOWN MEDICATION [Suspect]
     Indication: ARRHYTHMIA
     Route: 065

REACTIONS (3)
  - VISUAL ACUITY REDUCED [None]
  - ANURIA [None]
  - CONSTIPATION [None]
